FAERS Safety Report 10164525 (Version 2)
Quarter: 2014Q2

REPORT INFORMATION
  Report Type: Spontaneous
  Country: US (occurrence: US)
  Receive Date: 20140510
  Receipt Date: 20140510
  Transmission Date: 20141212
  Serious: No
  Sender: FDA-Public Use
  Company Number: US-BRISTOL-MYERS SQUIBB COMPANY-20090585

PATIENT
  Age: 65 Year
  Sex: Female
  Weight: 81.18 kg

DRUGS (7)
  1. BYDUREON [Suspect]
     Dates: start: 20131220
  2. LEVOTHYROXINE [Concomitant]
  3. METOPROLOL [Concomitant]
  4. LOSARTAN [Concomitant]
     Dosage: 1DF: 100/25 MG
  5. GLYBURIDE + METFORMIN HCL [Concomitant]
     Dosage: 1DF: 2.5/500 MG
  6. ATORVASTATIN [Concomitant]
  7. VITAMIN D [Concomitant]
     Dosage: 1DF: 50,000 UNITS

REACTIONS (3)
  - Swelling [Unknown]
  - Erythema [Unknown]
  - Pruritus [Unknown]
